FAERS Safety Report 10099978 (Version 2)
Quarter: 2014Q2

REPORT INFORMATION
  Report Type: Spontaneous
  Country: US (occurrence: US)
  Receive Date: 20140423
  Receipt Date: 20140520
  Transmission Date: 20141212
  Serious: Yes (Other)
  Sender: FDA-Public Use
  Company Number: US-TEVA-476963USA

PATIENT
  Age: 45 Year
  Sex: Female
  Weight: 71.73 kg

DRUGS (2)
  1. PARAGARD 380A [Suspect]
     Indication: POST COITAL CONTRACEPTION
     Route: 015
     Dates: start: 20140203, end: 20140425
  2. PARAGARD 380A [Suspect]
     Route: 015
     Dates: start: 20140425

REACTIONS (1)
  - Device dislocation [Recovered/Resolved]
